FAERS Safety Report 7618647-8 (Version None)
Quarter: 2011Q3

REPORT INFORMATION
  Report Type: 
  Country: None (occurrence: None)
  Receive Date: 20110718
  Receipt Date: 20110711
  Transmission Date: 20111222
  Serious: Yes (Death)
  Sender: FDA-Public Use
  Company Number: AU-CELGENEUS-008-20785-11070112

PATIENT
  Sex: Female
  Weight: 64 kg

DRUGS (2)
  1. THALIDOMIDE [Suspect]
     Indication: BREAST CANCER
     Dosage: 50 MILLIGRAM
     Route: 048
     Dates: start: 20110328
  2. DEXAMETHASONE [Concomitant]
     Indication: PAIN
     Dosage: 8 MILLIGRAM
     Route: 065
     Dates: start: 20110125, end: 20110408

REACTIONS (1)
  - BREAST CANCER METASTATIC [None]
